FAERS Safety Report 20543320 (Version 1)
Quarter: 2022Q1

REPORT INFORMATION
  Report Type: Spontaneous
  Country: DE (occurrence: DE)
  Receive Date: 20220302
  Receipt Date: 20220302
  Transmission Date: 20220423
  Serious: Yes (Other)
  Sender: FDA-Public Use
  Company Number: DE-NOVARTISPH-NVSC2022DE048446

PATIENT
  Age: 76 Year
  Sex: Male

DRUGS (2)
  1. CARBOPLATIN [Suspect]
     Active Substance: CARBOPLATIN
     Indication: Anaplastic thyroid cancer
     Dosage: UNK CARBOPLATIN AUC5, 5 CYCLES
     Route: 065
  2. PACLITAXEL [Suspect]
     Active Substance: PACLITAXEL
     Indication: Anaplastic thyroid cancer
     Dosage: 200 MG/M2, CYCLIC (5 CYCLES)
     Route: 065

REACTIONS (6)
  - Metastases to lung [Unknown]
  - Metastases to lymph nodes [Unknown]
  - Anaplastic thyroid cancer [Unknown]
  - Malignant neoplasm progression [Unknown]
  - Thyroid cancer recurrent [Unknown]
  - Product use in unapproved indication [Unknown]
